FAERS Safety Report 4505016-2 (Version None)
Quarter: 2004Q4

REPORT INFORMATION
  Report Type: 
  Country: None (occurrence: None)
  Receive Date: 20041116
  Receipt Date: 20041028
  Transmission Date: 20050328
  Serious: No
  Sender: FDA-Public Use
  Company Number: DSA_24971_2004

PATIENT
  Age: 55 Year
  Sex: Female

DRUGS (10)
  1. ENALAPRIL MALEATE [Suspect]
     Indication: HYPERTENSION
     Dosage: 5 MG QD PO
     Route: 048
     Dates: start: 19970101, end: 20040901
  2. TRYPTOPHAN IMMUNOADSORPTION [Suspect]
     Indication: MYASTHENIA GRAVIS
     Dosage: DF
     Dates: end: 20040901
  3. PREDNISOLONE [Concomitant]
  4. PROGRAF [Concomitant]
  5. FAMOTIDINE [Concomitant]
  6. ALFAROL [Concomitant]
  7. CYTOTEC [Concomitant]
  8. HICEE [Concomitant]
  9. LENDORMIN [Concomitant]
  10. MYSLEE [Concomitant]

REACTIONS (10)
  - ALANINE AMINOTRANSFERASE INCREASED [None]
  - BASOPHIL PERCENTAGE INCREASED [None]
  - BLOOD PRESSURE DECREASED [None]
  - CHEST DISCOMFORT [None]
  - DRUG INTERACTION [None]
  - DUODENAL ULCER [None]
  - EOSINOPHIL PERCENTAGE INCREASED [None]
  - LYMPHOCYTE PERCENTAGE DECREASED [None]
  - MONOCYTE PERCENTAGE INCREASED [None]
  - SHOCK [None]
